FAERS Safety Report 6523760-2 (Version None)
Quarter: 2009Q4

REPORT INFORMATION
  Report Type: 
  Country: None (occurrence: None)
  Receive Date: 20091230
  Receipt Date: 20091230
  Transmission Date: 20100525
  Serious: No
  Sender: FDA-Public Use
  Company Number: None

PATIENT
  Age: 39 Year
  Sex: Male
  Weight: 88 kg

DRUGS (1)
  1. TRAZODONE HCL [Suspect]
     Indication: INSOMNIA
     Dosage: 200 MG HS PO
     Route: 048
     Dates: start: 20090429, end: 20091224

REACTIONS (1)
  - PRIAPISM [None]
